FAERS Safety Report 22307844 (Version 1)
Quarter: 2023Q2

REPORT INFORMATION
  Report Type: Spontaneous
  Country: US (occurrence: US)
  Receive Date: 20230511
  Receipt Date: 20230511
  Transmission Date: 20230721
  Serious: No
  Sender: FDA-Public Use
  Company Number: US-Amarin Pharma, Inc.-2023AMR000023

PATIENT

DRUGS (2)
  1. VASCEPA [Suspect]
     Active Substance: ICOSAPENT ETHYL
     Indication: Blood triglycerides increased
  2. ICOSAPENT ETHYL [Suspect]
     Active Substance: ICOSAPENT ETHYL
     Indication: Product used for unknown indication

REACTIONS (5)
  - Blood triglycerides increased [Unknown]
  - Blood cholesterol increased [Unknown]
  - Drug ineffective [Unknown]
  - Wrong product administered [Unknown]
  - Product taste abnormal [Unknown]

NARRATIVE: CASE EVENT DATE: 20220101
